FAERS Safety Report 5371671-0 (Version None)
Quarter: 2007Q2

REPORT INFORMATION
  Report Type: 
  Country: None (occurrence: None)
  Receive Date: 20070625
  Receipt Date: 20070613
  Transmission Date: 20071010
  Serious: Yes (Hospitalization)
  Sender: FDA-Public Use
  Company Number: GXKR2007GB05091

PATIENT
  Age: 55 Year
  Sex: Female
  Weight: 60 kg

DRUGS (13)
  1. GABAPENTIN [Suspect]
     Indication: NEURALGIA
     Dosage: 600 MG, TID
     Dates: start: 20050501
  2. ALFENTANIL [Suspect]
     Indication: OSTEOTOMY
     Dosage: 0.5 MG, INTRAVENOUS;   FOR 1 HRS 30 MIN
     Route: 042
     Dates: start: 20050701
  3. FENTANYL [Suspect]
     Indication: OSTEOTOMY
     Dosage: SEE IMAGE
     Route: 042
     Dates: start: 20050701
  4. FENTANYL [Suspect]
     Indication: OSTEOTOMY
     Dosage: SEE IMAGE
     Route: 042
     Dates: start: 20060601
  5. FENTANYL [Suspect]
     Indication: OSTEOTOMY
     Dosage: SEE IMAGE
     Route: 042
     Dates: start: 20061201
  6. PROPOFOL [Suspect]
     Indication: OSTEOTOMY
     Dosage: SEE IMAGE
     Route: 042
     Dates: start: 20050701
  7. PROPOFOL [Suspect]
     Indication: OSTEOTOMY
     Dosage: SEE IMAGE
     Route: 042
     Dates: start: 20060601
  8. ISOFLURANE [Suspect]
     Indication: VARICOSE VEIN OPERATION
     Dosage: 0.9  4%
     Dates: start: 20060601
  9. SEVOFLURANE [Suspect]
     Dosage: 1.8 - 2.2%
     Dates: start: 20061201
  10. ACETAMINOPHEN [Concomitant]
  11. CODEINE PHOSPHATE (CODEINE PHOSPHATE) [Concomitant]
  12. DEXAMETHASONE TAB [Concomitant]
  13. OXYGEN (OXYGEN) [Concomitant]

REACTIONS (4)
  - DRUG INTERACTION [None]
  - DYSTONIA [None]
  - MYOTONIA [None]
  - SINUS TACHYCARDIA [None]
